FAERS Safety Report 16934555 (Version 1)
Quarter: 2019Q4

REPORT INFORMATION
  Report Type: Report from Study
  Country: CA (occurrence: CA)
  Receive Date: 20191018
  Receipt Date: 20191018
  Transmission Date: 20200122
  Serious: Yes (Other)
  Sender: FDA-Public Use
  Company Number: PHHY2019CA127586

PATIENT
  Age: 57 Year
  Sex: Female

DRUGS (2)
  1. GILENYA [Suspect]
     Active Substance: FINGOLIMOD HYDROCHLORIDE
     Indication: PRODUCT USED FOR UNKNOWN INDICATION
     Dosage: UNK
     Route: 048
     Dates: start: 20120416
  2. GILENYA [Suspect]
     Active Substance: FINGOLIMOD HYDROCHLORIDE
     Dosage: GILENYA FOR 5 DAYS A WEEK AND TO NOT SKIP TWO DAYS IN A ROW
     Route: 048

REACTIONS (2)
  - Prescribed underdose [Unknown]
  - Expanded disability status scale score increased [Unknown]

NARRATIVE: CASE EVENT DATE: 20190320
